FAERS Safety Report 9779036 (Version 4)
Quarter: 2014Q1

REPORT INFORMATION
  Report Type: Spontaneous
  Country: JP (occurrence: JP)
  Receive Date: 20131223
  Receipt Date: 20140204
  Transmission Date: 20141002
  Serious: Yes (Hospitalization)
  Sender: FDA-Public Use
  Company Number: JP-BAYER-2013-154066

PATIENT
  Age: 82 Year
  Sex: Female
  Weight: 61 kg

DRUGS (3)
  1. IOPAMIRON 300 [Suspect]
     Indication: COMPUTERISED TOMOGRAM
     Dosage: 100 ML, ONCE
     Route: 042
     Dates: start: 20131022, end: 20131022
  2. IOPAMIRON 300 [Suspect]
     Indication: DEEP VEIN THROMBOSIS
  3. BAYASPIRIN [Suspect]
     Indication: PHLEBITIS
     Dosage: DAILY DOSE 100 MG
     Route: 048
     Dates: start: 20131023, end: 20131101

REACTIONS (2)
  - Toxic skin eruption [Recovered/Resolved]
  - Erythema [Recovered/Resolved]
